FAERS Safety Report 11259608 (Version 1)
Quarter: 2015Q3

REPORT INFORMATION
  Report Type: Spontaneous
  Country: None (occurrence: None)
  Receive Date: 20150709
  Receipt Date: 20150709
  Transmission Date: 20151125
  Serious: No
  Sender: FDA-Public Use
  Company Number: None

PATIENT
  Age: 60 Year
  Sex: Female
  Weight: 72.58 kg

DRUGS (1)
  1. HYDROCODONE BITARTRATE AND ACETAMINOPHEN [Suspect]
     Active Substance: ACETAMINOPHEN\HYDROCODONE BITARTRATE
     Indication: SHOULDER OPERATION
     Dosage: 1 PILL
     Route: 048
     Dates: start: 20150513, end: 20150708

REACTIONS (1)
  - Initial insomnia [None]

NARRATIVE: CASE EVENT DATE: 20150616
